FAERS Safety Report 4596134-1 (Version None)
Quarter: 2005Q1

REPORT INFORMATION
  Report Type: 
  Country: None (occurrence: None)
  Receive Date: 20050302
  Receipt Date: 20050208
  Transmission Date: 20050727
  Serious: Yes (Other)
  Sender: FDA-Public Use
  Company Number: FR-ROCHE-395088

PATIENT
  Age: 39 Year
  Sex: Female

DRUGS (10)
  1. CYMEVAN [Suspect]
     Route: 065
  2. CELLCEPT [Suspect]
     Indication: RENAL TRANSPLANT
     Dosage: AT DISCHARGE.
     Route: 065
  3. CELLCEPT [Suspect]
     Route: 065
     Dates: start: 20040928
  4. CELLCEPT [Suspect]
     Dosage: LOWERED AT EVENT ONSET.
     Route: 065
  5. CELLCEPT [Suspect]
     Dosage: DOSE 500 3 TIMES DAILY.
     Route: 065
     Dates: start: 20050106
  6. BACTRIM [Suspect]
     Route: 065
  7. NEORECORMON [Concomitant]
     Indication: DRUG USE FOR UNKNOWN INDICATION
     Dosage: FORMULATION REPORTED AS INJECTABLE SOLUTION.
     Route: 065
  8. FORTUM [Concomitant]
  9. TENORMIN [Concomitant]
  10. CORTANCYL [Concomitant]
     Dosage: DOSAGE REGIMEN REPORTED AS 60 MG.

REACTIONS (4)
  - ABSCESS [None]
  - AGRANULOCYTOSIS [None]
  - ESCHERICHIA INFECTION [None]
  - KIDNEY TRANSPLANT REJECTION [None]
